FAERS Safety Report 6229452-1 (Version None)
Quarter: 2009Q2

REPORT INFORMATION
  Report Type: 
  Country: None (occurrence: None)
  Receive Date: 20090608
  Receipt Date: 20080829
  Transmission Date: 20091009
  Serious: No
  Sender: FDA-Public Use
  Company Number: APP200800773

PATIENT
  Age: 69 Year
  Sex: Female
  Weight: 82 kg

DRUGS (4)
  1. PROTAMINE SULFATE [Suspect]
     Indication: HEPARIN NEUTRALISATION THERAPY
     Dosage: 250 MG, ONCE, INTRAVENOUS, ONCE
     Route: 042
     Dates: start: 20080829, end: 20080829
  2. PROTAMINE SULFATE [Suspect]
     Indication: HEPARIN NEUTRALISATION THERAPY
     Dosage: 250 MG, ONCE, INTRAVENOUS, ONCE
     Route: 042
     Dates: start: 20080829, end: 20080829
  3. PROTAMINE SULFATE [Suspect]
  4. HEPARIN SODIUM (HEPARIN) [Concomitant]

REACTIONS (1)
  - DRUG EFFECT DECREASED [None]
